FAERS Safety Report 10120691 (Version 1)
Quarter: 2014Q2

REPORT INFORMATION
  Report Type: Spontaneous
  Country: US (occurrence: US)
  Receive Date: 20140425
  Receipt Date: 20140425
  Transmission Date: 20141212
  Serious: No
  Sender: FDA-Public Use
  Company Number: US-009507513-1404USA012328

PATIENT
  Sex: Female

DRUGS (1)
  1. DR. SCHOLL^S CLEAR AWAY WART REMOVER FAST-ACTING LIQUID [Suspect]
     Indication: PRODUCT USED FOR UNKNOWN INDICATION
     Dosage: UNK, UNKNOWN
     Route: 061

REACTIONS (2)
  - Nail discolouration [Not Recovered/Not Resolved]
  - Off label use [Unknown]
